FAERS Safety Report 4400329-7 (Version None)
Quarter: 2004Q2

REPORT INFORMATION
  Report Type: 
  Country: None (occurrence: None)
  Receive Date: 20040618
  Receipt Date: 20040518
  Transmission Date: 20050107
  Serious: No
  Sender: FDA-Public Use
  Company Number: US-JNJFOC-20040504479

PATIENT
  Age: 36 Year
  Sex: Female
  Weight: 95.2554 kg

DRUGS (4)
  1. ORTHO EVRA [Suspect]
     Indication: CONTRACEPTION
     Dosage: 1 DOSE(S), 3 IN 4 WEEK, TRANSDERMAL
     Route: 062
     Dates: start: 20031101
  2. ORTHO EVRA [Suspect]
     Indication: DYSMENORRHOEA
     Dosage: 1 DOSE(S), 3 IN 4 WEEK, TRANSDERMAL
     Route: 062
     Dates: start: 20031101
  3. LEXAPRO [Concomitant]
  4. AMBIEN (ZOLPIDEM TARTRATE) UNSPECIFIED [Concomitant]

REACTIONS (3)
  - BREAST TENDERNESS [None]
  - DIZZINESS [None]
  - NAUSEA [None]
